FAERS Safety Report 12185326 (Version 5)
Quarter: 2019Q1

REPORT INFORMATION
  Report Type: Report from Study
  Country: US (occurrence: US)
  Receive Date: 20160316
  Receipt Date: 20190228
  Transmission Date: 20190417
  Serious: Yes (Death, Hospitalization, Other)
  Sender: FDA-Public Use
  Company Number: US-ACTELION-A-US2016-130314

PATIENT
  Age: 69 Year
  Sex: Female
  Weight: 57.14 kg

DRUGS (3)
  1. WARFARIN [Concomitant]
     Active Substance: WARFARIN
  2. ORENITRAM [Concomitant]
     Active Substance: TREPROSTINIL
  3. TRACLEER [Suspect]
     Active Substance: BOSENTAN
     Indication: PULMONARY ARTERIAL HYPERTENSION
     Dosage: 125 MG, BID
     Route: 048
     Dates: start: 20141120

REACTIONS (12)
  - Cardiac disorder [Unknown]
  - Septic shock [Fatal]
  - Dialysis [Unknown]
  - Cardiogenic shock [Fatal]
  - Lung disorder [Unknown]
  - Diarrhoea [Unknown]
  - Pneumonia [Unknown]
  - Hypotension [Unknown]
  - Dyspnoea exertional [Unknown]
  - Bronchitis [Unknown]
  - Headache [Unknown]
  - Condition aggravated [Fatal]

NARRATIVE: CASE EVENT DATE: 20181222
